FAERS Safety Report 21561365 (Version 1)
Quarter: 2022Q4

REPORT INFORMATION
  Report Type: Report from Study
  Country: US (occurrence: US)
  Receive Date: 20221107
  Receipt Date: 20221107
  Transmission Date: 20230113
  Serious: Yes (Other)
  Sender: FDA-Public Use
  Company Number: US-ABBVIE-4185642

PATIENT
  Sex: Female

DRUGS (1)
  1. HUMIRA [Suspect]
     Active Substance: ADALIMUMAB
     Indication: Rheumatoid arthritis
     Route: 058

REACTIONS (8)
  - Oesophageal carcinoma [Unknown]
  - Skin disorder [Unknown]
  - Fall [Unknown]
  - Mass [Unknown]
  - Pain of skin [Unknown]
  - Pain of skin [Unknown]
  - Dyspepsia [Unknown]
  - Gastritis [Unknown]
